FAERS Safety Report 5533580-3 (Version None)
Quarter: 2007Q4

REPORT INFORMATION
  Report Type: 
  Country: None (occurrence: None)
  Receive Date: 20071129
  Receipt Date: 20071120
  Transmission Date: 20080405
  Serious: Yes (Hospitalization)
  Sender: FDA-Public Use
  Company Number: 2007BI018603

PATIENT
  Age: 49 Year
  Sex: Female
  Weight: 57.1532 kg

DRUGS (1)
  1. NATALIZUMAB [Suspect]
     Indication: MULTIPLE SCLEROSIS
     Dosage: 300 MG;QM;IV
     Route: 042
     Dates: start: 20070723, end: 20070812

REACTIONS (9)
  - COAGULATION TIME PROLONGED [None]
  - CONDITION AGGRAVATED [None]
  - DRUG LEVEL INCREASED [None]
  - HAEMATOTOXICITY [None]
  - INTERNATIONAL NORMALISED RATIO INCREASED [None]
  - MULTIPLE SCLEROSIS [None]
  - NOSOCOMIAL INFECTION [None]
  - SEPSIS [None]
  - STAPHYLOCOCCAL INFECTION [None]
